FAERS Safety Report 18741481 (Version 1)
Quarter: 2021Q1

REPORT INFORMATION
  Report Type: Spontaneous
  Country: US (occurrence: US)
  Receive Date: 20210114
  Receipt Date: 20210114
  Transmission Date: 20210419
  Serious: No
  Sender: FDA-Public Use
  Company Number: US-ABBVIE-20K-163-3560105-00

PATIENT
  Sex: Female

DRUGS (2)
  1. DUOPA [Suspect]
     Active Substance: CARBIDOPA\LEVODOPA
     Indication: PRODUCT USED FOR UNKNOWN INDICATION
     Route: 050
  2. DUOPA [Suspect]
     Active Substance: CARBIDOPA\LEVODOPA

REACTIONS (7)
  - Dyspnoea [Unknown]
  - Device dislocation [Unknown]
  - On and off phenomenon [Unknown]
  - Drug ineffective [Unknown]
  - Hyperhidrosis [Unknown]
  - Slow speech [Unknown]
  - Bradykinesia [Unknown]

NARRATIVE: CASE EVENT DATE: 2020
